FAERS Safety Report 19786047 (Version 2)
Quarter: 2021Q3

REPORT INFORMATION
  Report Type: Spontaneous
  Country: CZ (occurrence: CZ)
  Receive Date: 20210903
  Receipt Date: 20210927
  Transmission Date: 20211014
  Serious: Yes (Life-Threatening, Hospitalization)
  Sender: FDA-Public Use
  Company Number: CZ-SUN PHARMACEUTICAL INDUSTRIES LTD-2021R1-310017

PATIENT
  Age: 68 Year
  Sex: Female

DRUGS (4)
  1. TRAZODONE [Suspect]
     Active Substance: TRAZODONE HYDROCHLORIDE
     Indication: DEPRESSIVE SYMPTOM
     Dosage: UNK (1500 MG)
     Route: 065
  2. HYDROXYZIN [Concomitant]
     Indication: DEPRESSIVE SYMPTOM
     Dosage: UNK (15 MG IN THE EVENING)
     Route: 065
  3. VORTIOXETINE. [Concomitant]
     Active Substance: VORTIOXETINE
     Indication: DEPRESSIVE SYMPTOM
     Dosage: UNK (10 MG)
     Route: 065
  4. TRAZODONE [Suspect]
     Active Substance: TRAZODONE HYDROCHLORIDE
     Dosage: UNK (150 MG IN THE EVENING)
     Route: 065

REACTIONS (4)
  - Compartment syndrome [Recovering/Resolving]
  - Toxicity to various agents [Unknown]
  - Depressed level of consciousness [Recovering/Resolving]
  - Overdose [Unknown]
